FAERS Safety Report 8069640 (Version 4)
Quarter: 2014Q4

REPORT INFORMATION
  Report Type: Spontaneous
  Country: FR (occurrence: FR)
  Receive Date: 20110804
  Receipt Date: 20141029
  Transmission Date: 20150529
  Serious: Yes (Hospitalization, Other)
  Sender: FDA-Public Use
  Company Number: FR-JNJFOC-20110800504

PATIENT
  Age: 30 Year
  Sex: Female
  Weight: 73 kg

DRUGS (9)
  1. CLOMIPHENE [Suspect]
     Active Substance: CLOMIPHENE
     Indication: OVULATION INDUCTION
     Route: 065
  2. ATARAX [Suspect]
     Active Substance: HYDROXYZINE\HYDROXYZINE HYDROCHLORIDE
     Indication: PRURITUS
     Dosage: FROM 32 TO 34.5 WEEKS OF AMENORRHEA
     Route: 065
  3. OROKEN [Suspect]
     Active Substance: CEFIXIME
     Indication: ESCHERICHIA INFECTION
     Dosage: AT 34 WEEKS OF AMENORRHEA
     Route: 065
  4. CLOMID [Suspect]
     Active Substance: CLOMIPHENE CITRATE
     Indication: PRODUCT USED FOR UNKNOWN INDICATION
     Route: 065
  5. INFLIXIMAB, RECOMBINANT [Suspect]
     Active Substance: INFLIXIMAB
     Indication: COLITIS ULCERATIVE
     Route: 042
     Dates: start: 2009
  6. FLAGYL [Suspect]
     Active Substance: METRONIDAZOLE\METRONIDAZOLE HYDROCHLORIDE
     Indication: ESCHERICHIA INFECTION
     Dosage: AT 34 WEEKS OF AMENORRHEA
     Route: 065
  7. TRACTOCILE (ATOSIBAN) [Suspect]
     Active Substance: ATOSIBAN
     Indication: THREATENED LABOUR
     Dosage: AT 33 WEEKS OF AMENORRHEA
     Route: 065
  8. INFLIXIMAB, RECOMBINANT [Suspect]
     Active Substance: INFLIXIMAB
     Indication: COLITIS ULCERATIVE
     Dosage: USED UNTIL 26 WEEKS OF AMENORRHEA
     Route: 042
     Dates: end: 20110404
  9. POLARAMIN [Suspect]
     Active Substance: DEXCHLORPHENIRAMINE MALEATE
     Indication: PRURITUS
     Dosage: FROM 32 TO 34.5 WEEKS OF AMENORRHEA
     Route: 065

REACTIONS (8)
  - Exposure during pregnancy [Recovered/Resolved]
  - HELLP syndrome [Unknown]
  - Pre-eclampsia [Unknown]
  - Premature labour [Recovered/Resolved]
  - Premature delivery [Recovered/Resolved]
  - Gestational hypertension [Unknown]
  - Acute kidney injury [Unknown]
  - Pruritus [Unknown]

NARRATIVE: CASE EVENT DATE: 20101111
